FAERS Safety Report 16608959 (Version 6)
Quarter: 2020Q3

REPORT INFORMATION
  Report Type: Spontaneous
  Country: US (occurrence: US)
  Receive Date: 20190722
  Receipt Date: 20200925
  Transmission Date: 20201102
  Serious: Yes (Hospitalization, Other)
  Sender: FDA-Public Use
  Company Number: US-GILEAD-2019-0419331

PATIENT
  Sex: Male
  Weight: 97.51 kg

DRUGS (18)
  1. ASPIRIN [ACETYLSALICYLIC ACID] [Concomitant]
     Active Substance: ASPIRIN
  2. BACTRIM [Concomitant]
     Active Substance: SULFAMETHOXAZOLE\TRIMETHOPRIM
  3. SUSTIVA [Concomitant]
     Active Substance: EFAVIRENZ
     Dosage: UNK
     Dates: start: 1990, end: 2000
  4. AMOXICILLIN. [Concomitant]
     Active Substance: AMOXICILLIN
  5. REYATAZ [Concomitant]
     Active Substance: ATAZANAVIR SULFATE
     Dosage: UNK
     Dates: end: 20190228
  6. ZIAGEN [Concomitant]
     Active Substance: ABACAVIR SULFATE
     Dosage: UNK
     Dates: start: 1990, end: 2000
  7. CORTISONE [Concomitant]
     Active Substance: CORTISONE
  8. ISENTRESS [Concomitant]
     Active Substance: RALTEGRAVIR POTASSIUM
     Dosage: UNK
     Dates: start: 2014
  9. ALDACTONE [Concomitant]
     Active Substance: SPIRONOLACTONE
  10. PENICILLIN NOS [Concomitant]
     Active Substance: PENICILLIN
  11. DESCOVY [Concomitant]
     Active Substance: EMTRICITABINE\TENOFOVIR ALAFENAMIDE FUMARATE
  12. TRUVADA [Suspect]
     Active Substance: EMTRICITABINE\TENOFOVIR DISOPROXIL FUMARATE
     Indication: HIV INFECTION
     Dosage: UNK
     Route: 048
     Dates: start: 2009, end: 2019
  13. ACYCLOVIR [ACICLOVIR] [Concomitant]
     Active Substance: ACYCLOVIR
  14. OMEPRAZOLE. [Concomitant]
     Active Substance: OMEPRAZOLE
  15. EVOTAZ [Concomitant]
     Active Substance: ATAZANAVIR SULFATE\COBICISTAT
     Dosage: UNK
     Dates: start: 20190228
  16. NORVIR [Concomitant]
     Active Substance: RITONAVIR
     Dosage: UNK
     Dates: start: 1990, end: 2000
  17. ACETAMINOPHEN. [Concomitant]
     Active Substance: ACETAMINOPHEN
  18. ATRIPLA [Suspect]
     Active Substance: EFAVIRENZ\EMTRICITABINE\TENOFOVIR DISOPROXIL FUMARATE
     Indication: PRODUCT USED FOR UNKNOWN INDICATION
     Dosage: UNK
     Route: 048
     Dates: start: 200607, end: 201612

REACTIONS (19)
  - Bone loss [Not Recovered/Not Resolved]
  - Protein total abnormal [Unknown]
  - Illness [Unknown]
  - Osteonecrosis [Unknown]
  - Dental caries [Not Recovered/Not Resolved]
  - Emotional distress [Unknown]
  - Oesophageal disorder [Unknown]
  - Fracture [Unknown]
  - Renal disorder [Unknown]
  - Glomerular filtration rate abnormal [Unknown]
  - Bone density decreased [Unknown]
  - Gastric disorder [Unknown]
  - Tooth loss [Not Recovered/Not Resolved]
  - Pain [Unknown]
  - Anxiety [Unknown]
  - Depression [Not Recovered/Not Resolved]
  - Coma [Unknown]
  - Osteoporosis [Unknown]
  - Blood creatinine increased [Unknown]

NARRATIVE: CASE EVENT DATE: 2009
